FAERS Safety Report 7644996-3 (Version None)
Quarter: 2011Q3

REPORT INFORMATION
  Report Type: 
  Country: None (occurrence: None)
  Receive Date: 20110729
  Receipt Date: 20110720
  Transmission Date: 20111222
  Serious: Yes (Other)
  Sender: FDA-Public Use
  Company Number: US-VIIV HEALTHCARE LIMITED-A0938715A

PATIENT
  Age: 32 Year
  Sex: Female

DRUGS (6)
  1. EPZICOM [Suspect]
     Indication: ANTIVIRAL TREATMENT
     Dosage: 1TAB PER DAY
     Route: 048
  2. PHENCYCLIDINE [Concomitant]
     Indication: PRODUCT USED FOR UNKNOWN INDICATION
  3. RETROVIR [Concomitant]
     Dosage: 1MGKH PER DAY
     Route: 065
     Dates: start: 20110703, end: 20110703
  4. XANAX [Concomitant]
     Indication: PRODUCT USED FOR UNKNOWN INDICATION
  5. RETROVIR [Concomitant]
     Indication: ANTIVIRAL TREATMENT
     Dosage: 2MGKH PER DAY
     Route: 042
     Dates: start: 20110703, end: 20110703
  6. KALETRA [Suspect]
     Indication: ANTIVIRAL TREATMENT
     Dosage: 4TAB PER DAY
     Route: 048

REACTIONS (4)
  - BIPOLAR DISORDER [None]
  - THROMBOCYTOPENIA [None]
  - DEPRESSION [None]
  - MATERNAL EXPOSURE DURING PREGNANCY [None]
